FAERS Safety Report 18746810 (Version 2)
Quarter: 2021Q1

REPORT INFORMATION
  Report Type: Spontaneous
  Country: FR (occurrence: FR)
  Receive Date: 20210115
  Receipt Date: 20210119
  Transmission Date: 20210419
  Serious: Yes (Other)
  Sender: FDA-Public Use
  Company Number: FR-PFIZER INC-2021019298

PATIENT
  Age: 21 Year
  Sex: Female
  Weight: 75 kg

DRUGS (3)
  1. PANTOPRAZOLE [Suspect]
     Active Substance: PANTOPRAZOLE
     Indication: ABDOMINAL PAIN UPPER
     Dosage: 40 MG, 1X/DAY
     Route: 048
     Dates: start: 20201204, end: 20201207
  2. CEFTRIAXONE. [Suspect]
     Active Substance: CEFTRIAXONE
     Indication: SEPSIS
     Dosage: 1 G, 1X/DAY
     Route: 042
     Dates: start: 20201202, end: 20201207
  3. AZITHROMYCINE [Suspect]
     Active Substance: AZITHROMYCIN
     Indication: SEPSIS
     Dosage: 250 MG, 1X/DAY
     Route: 048
     Dates: start: 20201205, end: 20201207

REACTIONS (2)
  - Neutropenia [Recovered/Resolved]
  - Anaemia [Recovered/Resolved]

NARRATIVE: CASE EVENT DATE: 20201206
